FAERS Safety Report 21744974 (Version 2)
Quarter: 2023Q1

REPORT INFORMATION
  Report Type: Spontaneous
  Country: IQ (occurrence: IQ)
  Receive Date: 20221219
  Receipt Date: 20230111
  Transmission Date: 20230417
  Serious: Yes (Other)
  Sender: FDA-Public Use
  Company Number: IQ-NOVOPROD-988637

PATIENT
  Sex: Male

DRUGS (2)
  1. OZEMPIC [Suspect]
     Active Substance: SEMAGLUTIDE
     Indication: Product used for unknown indication
     Dosage: 1 MG
  2. APIDRA [Suspect]
     Active Substance: INSULIN GLULISINE
     Indication: Product used for unknown indication
     Dosage: 80 UNITS OF INSULIN IN ONE SHOOT

REACTIONS (2)
  - Hypoglycaemic coma [Recovered/Resolved]
  - Counterfeit product administered [Unknown]
